FAERS Safety Report 24848279 (Version 1)
Quarter: 2025Q1

REPORT INFORMATION
  Report Type: Spontaneous
  Country: US (occurrence: US)
  Receive Date: 20250116
  Receipt Date: 20250116
  Transmission Date: 20250409
  Serious: No
  Sender: NOVARTIS
  Company Number: US-002147023-NVSC2025US006529

PATIENT
  Sex: Female
  Weight: 54.43 kg

DRUGS (1)
  1. SCEMBLIX [Suspect]
     Active Substance: ASCIMINIB HYDROCHLORIDE
     Indication: Product used for unknown indication
     Route: 047
     Dates: start: 20240606

REACTIONS (2)
  - Increased appetite [Recovering/Resolving]
  - Weight increased [Recovering/Resolving]
